FAERS Safety Report 7252394-X (Version None)
Quarter: 2011Q1

REPORT INFORMATION
  Report Type: 
  Country: None (occurrence: None)
  Receive Date: 20110129
  Receipt Date: 20100112
  Transmission Date: 20110831
  Serious: No
  Sender: FDA-Public Use
  Company Number: US-ABBOTT-10P-163-0619505-00

PATIENT
  Sex: Female
  Weight: 56.75 kg

DRUGS (6)
  1. HUMIRA [Suspect]
     Indication: PSORIASIS
     Route: 058
     Dates: start: 20090801
  2. DOVAX STEROID CREAM [Concomitant]
     Indication: PSORIASIS
     Route: 061
  3. HUMIRA [Suspect]
  4. HUMIRA [Suspect]
     Indication: PSORIATIC ARTHROPATHY
     Dosage: LOADING DOSE
     Dates: start: 20091001
  5. BIRTH CONTROL [Concomitant]
     Indication: CONTRACEPTION
  6. HUMIRA [Suspect]

REACTIONS (2)
  - ARTHRITIS [None]
  - PSORIASIS [None]
